FAERS Safety Report 10372112 (Version 1)
Quarter: 2014Q3

REPORT INFORMATION
  Report Type: Other
  Country: CN (occurrence: CN)
  Receive Date: 20140808
  Receipt Date: 20140808
  Transmission Date: 20150326
  Serious: Yes (Death)
  Sender: FDA-Public Use
  Company Number: CN-BRISTOL-MYERS SQUIBB COMPANY-21274311

PATIENT
  Age: 29 Year
  Sex: Male

DRUGS (13)
  1. WARFARIN SODIUM. [Suspect]
     Active Substance: WARFARIN SODIUM
     Dosage: 02MAR-18MAR13
     Dates: start: 20130302, end: 20130328
  2. LORATADINE. [Concomitant]
     Active Substance: LORATADINE
  3. PREDNISONE. [Concomitant]
     Active Substance: PREDNISONE
     Indication: IMMUNOSUPPRESSANT DRUG THERAPY
  4. GLUTATHIONE [Concomitant]
     Active Substance: GLUTATHIONE
     Indication: PROPHYLAXIS
  5. GANCICLOVIR [Concomitant]
     Active Substance: GANCICLOVIR
  6. MAGNESIUM [Concomitant]
     Active Substance: MAGNESIUM
     Indication: PROPHYLAXIS
  7. DEXAMETHASONE. [Concomitant]
     Active Substance: DEXAMETHASONE
  8. TACROLIMUS. [Concomitant]
     Active Substance: TACROLIMUS
     Indication: IMMUNOSUPPRESSANT DRUG THERAPY
  9. MYCOPHENOLIC ACID [Concomitant]
     Active Substance: MYCOPHENOLIC ACID
     Indication: IMMUNOSUPPRESSANT DRUG THERAPY
  10. CAPECITABINE [Interacting]
     Active Substance: CAPECITABINE
     Dates: start: 20130302, end: 20130318
  11. ENTECAVIR [Concomitant]
     Active Substance: ENTECAVIR
  12. VITAMIN K [Concomitant]
     Active Substance: PHYTONADIONE
     Indication: COAGULOPATHY
  13. HEPATITIS B IMMUNE GLOBULIN [Concomitant]
     Active Substance: HUMAN HEPATITIS B VIRUS IMMUNE GLOBULIN

REACTIONS (2)
  - Liver injury [Fatal]
  - Drug interaction [Fatal]
